FAERS Safety Report 8064464-7 (Version None)
Quarter: 2012Q1

REPORT INFORMATION
  Report Type: 
  Country: None (occurrence: None)
  Receive Date: 20120123
  Receipt Date: 20120118
  Transmission Date: 20120608
  Serious: Yes (Hospitalization, Other)
  Sender: FDA-Public Use
  Company Number: PHHY2012AU001185

PATIENT
  Sex: Female

DRUGS (1)
  1. ZOLEDRONOC ACID [Suspect]
     Dosage: 5 MG, YEARLY
     Route: 042
     Dates: start: 20101206

REACTIONS (4)
  - POST PROCEDURAL PNEUMONIA [None]
  - HERNIA [None]
  - DYSPNOEA [None]
  - POST PROCEDURAL INFECTION [None]
